FAERS Safety Report 23472611 (Version 1)
Quarter: 2024Q1

REPORT INFORMATION
  Report Type: Spontaneous
  Country: US (occurrence: US)
  Receive Date: 20240202
  Receipt Date: 20240202
  Transmission Date: 20240409
  Serious: No
  Sender: FDA-Public Use
  Company Number: US-BoehringerIngelheim-2024-BI-006228

PATIENT
  Age: 77 Year
  Sex: Male

DRUGS (1)
  1. OFEV [Suspect]
     Active Substance: NINTEDANIB
     Indication: Product used for unknown indication
     Dates: start: 202201

REACTIONS (2)
  - COVID-19 [Unknown]
  - Diarrhoea [Unknown]

NARRATIVE: CASE EVENT DATE: 20231001
